FAERS Safety Report 6428791-9 (Version None)
Quarter: 2009Q4

REPORT INFORMATION
  Report Type: 
  Country: None (occurrence: None)
  Receive Date: 20091105
  Receipt Date: 20091102
  Transmission Date: 20100525
  Serious: Yes (Death, Other)
  Sender: FDA-Public Use
  Company Number: GR-SANOFI-SYNTHELABO-F01200901051

PATIENT

DRUGS (3)
  1. CAPECITABINE [Suspect]
     Dosage: 1500 MG/M2
     Route: 065
  2. BEVACIZUMAB [Suspect]
     Dosage: 5 MG/KG
     Route: 065
  3. OXALIPLATIN [Suspect]
     Indication: COLORECTAL CANCER METASTATIC
     Dosage: 85 MG/M2
     Route: 041

REACTIONS (1)
  - SUDDEN DEATH [None]
